FAERS Safety Report 4507292-9 (Version None)
Quarter: 2004Q4

REPORT INFORMATION
  Report Type: 
  Country: None (occurrence: None)
  Receive Date: 20041025
  Receipt Date: 20040604
  Transmission Date: 20050328
  Serious: Yes (Hospitalization)
  Sender: FDA-Public Use
  Company Number: US-JNJFOC-20040601623

PATIENT
  Age: 34 Year
  Sex: Female
  Weight: 104.3273 kg

DRUGS (7)
  1. REMICADE [Suspect]
     Indication: CROHN'S DISEASE
     Dosage: INTRAVENOUS
     Route: 042
     Dates: start: 20030601
  2. PENTASA [Concomitant]
  3. HYDROCODONE (HYDROCODONE) [Concomitant]
  4. ZOLOFT [Concomitant]
  5. DICYCLOMINE [Concomitant]
  6. MORPINE (MORPHINE) [Concomitant]
  7. PHENERGAN [Concomitant]

REACTIONS (4)
  - BLOOD PRESSURE DECREASED [None]
  - CONDITION AGGRAVATED [None]
  - CROHN'S DISEASE [None]
  - CRYSTAL URINE PRESENT [None]
